FAERS Safety Report 8059886-4 (Version None)
Quarter: 2012Q1

REPORT INFORMATION
  Report Type: 
  Country: None (occurrence: None)
  Receive Date: 20120120
  Receipt Date: 20120110
  Transmission Date: 20120608
  Serious: Yes (Hospitalization)
  Sender: FDA-Public Use
  Company Number: US-JNJFOC-20110106940

PATIENT
  Age: 41 Year
  Sex: Male
  Weight: 85 kg

DRUGS (2)
  1. ACETAMINOPHEN [Suspect]
     Route: 065
  2. ACETAMINOPHEN [Suspect]
     Indication: PRODUCT USED FOR UNKNOWN INDICATION
     Route: 065
     Dates: start: 20110120, end: 20110120

REACTIONS (3)
  - INTENTIONAL SELF-INJURY [None]
  - ABDOMINAL DISCOMFORT [None]
  - INTENTIONAL OVERDOSE [None]
